FAERS Safety Report 4315477-X (Version None)
Quarter: 2004Q1

REPORT INFORMATION
  Report Type: 
  Country: None (occurrence: None)
  Receive Date: 20040310
  Receipt Date: 20040310
  Transmission Date: 20041129
  Serious: Yes (Other)
  Sender: FDA-Public Use
  Company Number: None

PATIENT
  Age: 6 Year
  Sex: Male

DRUGS (2)
  1. CONCERTA [Suspect]
     Indication: ATTENTION DEFICIT/HYPERACTIVITY DISORDER
     Dosage: TAKE 1 TABLET EVERY MORNING
     Dates: start: 20031107
  2. CLARITIN [Concomitant]

REACTIONS (2)
  - ABNORMAL BEHAVIOUR [None]
  - PHARMACEUTICAL PRODUCT COMPLAINT [None]
